FAERS Safety Report 23076928 (Version 2)
Quarter: 2023Q4

REPORT INFORMATION
  Report Type: Report from Study
  Country: US (occurrence: US)
  Receive Date: 20231018
  Receipt Date: 20231212
  Transmission Date: 20240109
  Serious: Yes (Death, Other)
  Sender: FDA-Public Use
  Company Number: US-ABBVIE-5454624

PATIENT
  Age: 86 Year
  Sex: Male
  Weight: 52.163 kg

DRUGS (9)
  1. CREON [Suspect]
     Active Substance: PANCRELIPASE AMYLASE\PANCRELIPASE LIPASE\PANCRELIPASE PROTEASE
     Indication: Product used for unknown indication
     Dosage: FORM STRENGTH: 36000 UNIT?FREQUENCY TEXT: 2 CAPSULES 3 MULTIPLY A DAY WITH MEAL
     Route: 048
  2. BUMETANIDE RATIOPHARM [Concomitant]
     Indication: Product used for unknown indication
     Route: 048
     Dates: start: 20230912
  3. LANOXIN [Concomitant]
     Active Substance: DIGOXIN
     Indication: Product used for unknown indication
     Dosage: 90 TABLETS
     Route: 048
     Dates: start: 20230703
  4. EPLERENONE [Concomitant]
     Active Substance: EPLERENONE
     Indication: Product used for unknown indication
     Dosage: EPLERENONE (INSPRA)
     Route: 048
     Dates: start: 20230316
  5. METOPROLOL [Concomitant]
     Active Substance: METOPROLOL
     Indication: Product used for unknown indication
     Dosage: 50 MG 24?90 TABLETS?DO NOT CRUSH OR CHEW
     Route: 048
     Dates: start: 20230327
  6. MIRTAZAPINE [Concomitant]
     Active Substance: MIRTAZAPINE
     Indication: Product used for unknown indication
     Dosage: AT NIGHT?60 TABLETS
     Route: 048
     Dates: start: 20230815
  7. NOVOLOG [Concomitant]
     Active Substance: INSULIN ASPART
     Indication: Product used for unknown indication
     Dosage: 100U/ML INJECTION?INJECT 12-14 UNIT UNDER SKIN IN THE MORNING AND 12-14 UNIT IN THE NOON AND 12-1...
     Route: 058
     Dates: start: 20221104
  8. POTASSIUM CHLORIDE [Concomitant]
     Active Substance: POTASSIUM CHLORIDE
     Indication: Product used for unknown indication
     Dosage: 540 CAPSULE?TAKE 2 CAPSULE IN THE MORNING, 2 CAPSULE IN THE EVENING AND 2 CAPSULE IN THE EVENING....
     Route: 048
     Dates: start: 20230410
  9. CYANOCOBALAMIN [Concomitant]
     Active Substance: CYANOCOBALAMIN
     Indication: Product used for unknown indication
     Route: 030
     Dates: start: 20220714

REACTIONS (2)
  - Death [Fatal]
  - Chest pain [Unknown]

NARRATIVE: CASE EVENT DATE: 20231013
